FAERS Safety Report 7002814-0 (Version None)
Quarter: 2010Q3

REPORT INFORMATION
  Report Type: 
  Country: None (occurrence: None)
  Receive Date: 20100902
  Receipt Date: 20100429
  Transmission Date: 20110219
  Serious: Yes (Disabling, Other)
  Sender: FDA-Public Use
  Company Number: 232574USA

PATIENT
  Sex: Male

DRUGS (1)
  1. METOCLOPRAMIDE [Suspect]
     Indication: GASTROOESOPHAGEAL REFLUX DISEASE
     Dosage: 20 MG (10 MG, 2 IN 1 D)
     Dates: start: 20000301, end: 20090716

REACTIONS (3)
  - ANXIETY [None]
  - DEPRESSION [None]
  - TARDIVE DYSKINESIA [None]
